FAERS Safety Report 22194281 (Version 1)
Quarter: 2023Q2

REPORT INFORMATION
  Report Type: Other
  Country: US (occurrence: US)
  Receive Date: 20230411
  Receipt Date: 20230411
  Transmission Date: 20230722
  Serious: Yes (Death)
  Sender: FDA-Public Use
  Company Number: US-ALVOGEN-2023091007

PATIENT
  Age: 46 Year
  Sex: Male

DRUGS (8)
  1. AMPHETAMINE\DEXTROAMPHETAMINE [Suspect]
     Active Substance: AMPHETAMINE\DEXTROAMPHETAMINE
     Indication: Suicide attempt
     Route: 048
  2. VENLAFAXINE [Suspect]
     Active Substance: VENLAFAXINE HYDROCHLORIDE
     Indication: Suicide attempt
     Route: 048
  3. HYDRALAZINE [Suspect]
     Active Substance: HYDRALAZINE HYDROCHLORIDE
     Indication: Suicide attempt
     Route: 048
  4. CLONAZEPAM [Suspect]
     Active Substance: CLONAZEPAM
     Indication: Suicide attempt
     Route: 048
  5. COCAINE [Suspect]
     Active Substance: COCAINE
     Indication: Suicide attempt
     Route: 048
  6. ALPRAZOLAM [Suspect]
     Active Substance: ALPRAZOLAM
     Indication: Suicide attempt
     Route: 048
  7. LOSARTAN [Suspect]
     Active Substance: LOSARTAN
     Indication: Suicide attempt
     Route: 048
  8. MELOXICAM [Suspect]
     Active Substance: MELOXICAM
     Indication: Suicide attempt
     Route: 048

REACTIONS (1)
  - Completed suicide [Fatal]
